FAERS Safety Report 6949291-3 (Version None)
Quarter: 2010Q3

REPORT INFORMATION
  Report Type: 
  Country: None (occurrence: None)
  Receive Date: 20100828
  Receipt Date: 20091230
  Transmission Date: 20110219
  Serious: No
  Sender: FDA-Public Use
  Company Number: US-ABBOTT-09P-163-0615129-00

PATIENT
  Sex: Female
  Weight: 96.702 kg

DRUGS (13)
  1. NIASPAN [Suspect]
     Indication: BLOOD CHOLESTEROL INCREASED
     Dates: start: 20080401, end: 20091101
  2. FLONASE [Concomitant]
     Indication: BRONCHIAL HYPERREACTIVITY
  3. PROVENTIL [Concomitant]
     Indication: BRONCHIAL HYPERREACTIVITY
  4. ASPIRIN [Concomitant]
     Indication: CEREBROVASCULAR ACCIDENT
  5. OXYCODONE [Concomitant]
     Indication: MIGRAINE
  6. HYDROCHLOROTHIAZIDE [Concomitant]
     Indication: HYPERTENSION
  7. NADOLOL [Concomitant]
     Indication: HYPERTENSION
  8. CRESTOR [Concomitant]
     Indication: BLOOD CHOLESTEROL INCREASED
  9. GABAPENTIN [Concomitant]
     Indication: PRODUCT USED FOR UNKNOWN INDICATION
  10. FENOFIBRATE [Concomitant]
     Indication: BLOOD CHOLESTEROL INCREASED
  11. ZOVIRAX [Concomitant]
     Indication: PRODUCT USED FOR UNKNOWN INDICATION
  12. TOPAMAX [Concomitant]
     Indication: MIGRAINE
  13. EFFEXOR [Concomitant]
     Indication: DEPRESSION

REACTIONS (3)
  - FLUSHING [None]
  - PRURITUS [None]
  - RASH [None]
